FAERS Safety Report 5117873-X (Version None)
Quarter: 2006Q3

REPORT INFORMATION
  Report Type: 
  Country: None (occurrence: None)
  Receive Date: 20060926
  Receipt Date: 20060913
  Transmission Date: 20061208
  Serious: Yes (Hospitalization)
  Sender: FDA-Public Use
  Company Number: 2006111216

PATIENT
  Age: 45 Year
  Sex: Male

DRUGS (2)
  1. RELPAX [Suspect]
     Dosage: ORAL
     Route: 048
     Dates: start: 20051201, end: 20060213
  2. CAFFEINE/CODEINE/PARACETAMOL (PARACETAMOL, CAFFEINE, CODEINE) [Suspect]
     Dates: start: 20051201, end: 20060213

REACTIONS (1)
  - DRUG ABUSER [None]
